FAERS Safety Report 23551576 (Version 1)
Quarter: 2024Q1

REPORT INFORMATION
  Report Type: Spontaneous
  Country: US (occurrence: US)
  Receive Date: 20240222
  Receipt Date: 20240222
  Transmission Date: 20240410
  Serious: Yes (Hospitalization)
  Sender: FDA-Public Use
  Company Number: US-STRIDES ARCOLAB LIMITED-2023SP001382

PATIENT
  Age: 60 Year
  Sex: Male

DRUGS (18)
  1. DEXAMETHASONE [Suspect]
     Active Substance: DEXAMETHASONE
     Indication: Hyperammonaemic encephalopathy
     Dosage: 40 MILLIGRAM, ONCE A WEEK (CYCLICAL BORTEZOMIB ONCE WEEKLY) (CYBORD REGIMEN)
     Route: 042
  2. DEXAMETHASONE [Suspect]
     Active Substance: DEXAMETHASONE
     Indication: Plasma cell myeloma
     Dosage: 40 MILLIGRAM, CYCLICAL (ONE CYCLE OF IV BOLUS OF DEXAMETHASONE 40 MG DAILY) (DCEP REGIMEN)
     Route: 040
  3. ETOPOSIDE [Suspect]
     Active Substance: ETOPOSIDE
     Indication: Hyperammonaemic encephalopathy
     Dosage: 40 MILLIGRAM/SQ. METER, CYCLICAL (ONE CYCLE OF CONTINUOUS IV INFUSION OF ETOPOSIDE 40 MG/M2 /DAY FRO
     Route: 042
  4. ETOPOSIDE [Suspect]
     Active Substance: ETOPOSIDE
     Indication: Plasma cell myeloma
  5. CISPLATIN [Suspect]
     Active Substance: CISPLATIN
     Indication: Hyperammonaemic encephalopathy
     Dosage: 10 MILLIGRAM/SQ. METER, CYCLICAL (ONE CYCLE OF CONTINUOUS IV INFUSION OF CISPLATIN 10 MG/M2 /DAY FRO
     Route: 042
  6. CISPLATIN [Suspect]
     Active Substance: CISPLATIN
     Indication: Plasma cell myeloma
  7. RIFAXIMIN [Suspect]
     Active Substance: RIFAXIMIN
     Indication: Hyperammonaemic encephalopathy
     Dosage: UNK
     Route: 065
  8. RIFAXIMIN [Suspect]
     Active Substance: RIFAXIMIN
     Indication: Plasma cell myeloma
  9. LACTULOSE [Suspect]
     Active Substance: LACTULOSE
     Indication: Hyperammonaemic encephalopathy
     Dosage: UNK
     Route: 065
  10. LACTULOSE [Suspect]
     Active Substance: LACTULOSE
     Indication: Plasma cell myeloma
  11. DARATUMUMAB [Suspect]
     Active Substance: DARATUMUMAB
     Indication: Hyperammonaemic encephalopathy
     Dosage: 1800 MILLIGRAM (CYBORD REGIMEN)
     Route: 058
  12. DARATUMUMAB [Suspect]
     Active Substance: DARATUMUMAB
     Indication: Plasma cell myeloma
  13. CYCLOPHOSPHAMIDE [Suspect]
     Active Substance: CYCLOPHOSPHAMIDE
     Indication: Hyperammonaemic encephalopathy
     Dosage: 225 MILLIGRAM/SQ. METER, ONCE A WEEK  (CYCLICAL CYCLOPHOSPHAMIDE ONCE WEEKLY)  (CYBORD REGIMEN)
     Route: 042
  14. CYCLOPHOSPHAMIDE [Suspect]
     Active Substance: CYCLOPHOSPHAMIDE
     Indication: Plasma cell myeloma
     Dosage: 400 MILLIGRAM/SQ. METER, CYCLICAL (ONE CYCLE OF CONTINUOUS IV INFUSION OF CYCLOPHOSPHAMIDE 400 MG/M2
     Route: 042
  15. BORTEZOMIB [Suspect]
     Active Substance: BORTEZOMIB
     Indication: Hyperammonaemic encephalopathy
     Dosage: 1.5 MILLIGRAM/SQ. METER, ONCE A WEEK (CYCLICAL BORTEZOMIB ONCE WEEKLY)  (CYBORD REGIMEN)
     Route: 042
  16. BORTEZOMIB [Suspect]
     Active Substance: BORTEZOMIB
     Indication: Plasma cell myeloma
  17. VENETOCLAX [Suspect]
     Active Substance: VENETOCLAX
     Indication: Hyperammonaemic encephalopathy
     Dosage: 200 MILLIGRAM PER DAY
     Route: 065
  18. VENETOCLAX [Suspect]
     Active Substance: VENETOCLAX
     Indication: Plasma cell myeloma
     Dosage: 400 MILLIGRAM PER DAY
     Route: 065

REACTIONS (1)
  - Drug ineffective for unapproved indication [Unknown]
